FAERS Safety Report 20770392 (Version 2)
Quarter: 2022Q2

REPORT INFORMATION
  Report Type: Spontaneous
  Country: US (occurrence: US)
  Receive Date: 20220429
  Receipt Date: 20220616
  Transmission Date: 20220721
  Serious: Yes (Hospitalization, Other)
  Sender: FDA-Public Use
  Company Number: US-BIOVITRUM-2022US05661

PATIENT
  Age: 51 Year
  Sex: Female

DRUGS (2)
  1. KINERET [Suspect]
     Active Substance: ANAKINRA
     Indication: Pericardial disease
     Route: 058
     Dates: start: 202012
  2. KINERET [Suspect]
     Active Substance: ANAKINRA
     Route: 058

REACTIONS (6)
  - Pericarditis [Unknown]
  - Muscular weakness [Unknown]
  - Muscle atrophy [Unknown]
  - Pain in extremity [Unknown]
  - Rash [Unknown]
  - Off label use [Unknown]

NARRATIVE: CASE EVENT DATE: 20201201
